FAERS Safety Report 4813190-3 (Version None)
Quarter: 2005Q4

REPORT INFORMATION
  Report Type: 
  Country: None (occurrence: None)
  Receive Date: 20051028
  Receipt Date: 20050407
  Transmission Date: 20060501
  Serious: No
  Sender: FDA-Public Use
  Company Number: US-GLAXOSMITHKLINE-A0553159A

PATIENT
  Age: 40 Year
  Sex: Female
  Weight: 75.5 kg

DRUGS (1)
  1. ADVAIR DISKUS 100/50 [Suspect]
     Route: 055
     Dates: start: 20010523, end: 20010523

REACTIONS (2)
  - DYSPHONIA [None]
  - WHEEZING [None]
